FAERS Safety Report 4733102-0 (Version None)
Quarter: 2005Q3

REPORT INFORMATION
  Report Type: 
  Country: None (occurrence: None)
  Receive Date: 20050803
  Receipt Date: 20050412
  Transmission Date: 20060218
  Serious: Yes (Other)
  Sender: FDA-Public Use
  Company Number: US-MERCK-0504USA01850

PATIENT
  Age: 65 Year
  Sex: Female

DRUGS (13)
  1. VIOXX [Suspect]
     Indication: ARTHRITIS
     Route: 048
     Dates: start: 20001221, end: 20040901
  2. PREVACID [Concomitant]
     Indication: DYSPEPSIA
     Route: 065
  3. ALLEGRA [Concomitant]
     Route: 065
  4. DESOWEN [Concomitant]
     Route: 065
  5. ZYRTEC-D [Concomitant]
     Route: 065
  6. PREMARIN [Concomitant]
     Indication: HORMONE REPLACEMENT THERAPY
     Route: 065
     Dates: start: 19990101, end: 20040201
  7. MECLIZINE [Concomitant]
     Route: 065
  8. TRIMOX [Concomitant]
     Route: 065
  9. NITROSTAT [Concomitant]
     Route: 065
  10. FLONASE [Concomitant]
     Route: 065
  11. METHYLPREDNISOLONE [Concomitant]
     Route: 065
  12. CEPHALEXIN [Concomitant]
     Route: 065
  13. DENAVIR [Concomitant]
     Route: 065

REACTIONS (5)
  - ANGINA PECTORIS [None]
  - ATHEROSCLEROSIS [None]
  - DYSPEPSIA [None]
  - HYPERTENSION [None]
  - MYOCARDIAL INFARCTION [None]
